FAERS Safety Report 5170154-0 (Version None)
Quarter: 2006Q4

REPORT INFORMATION
  Report Type: 
  Country: None (occurrence: None)
  Receive Date: 20061204
  Receipt Date: 20061127
  Transmission Date: 20070319
  Serious: Yes (Life-Threatening)
  Sender: FDA-Public Use
  Company Number: 232846

PATIENT
  Age: 87 Year
  Sex: Male

DRUGS (5)
  1. GRTPA                (ALTEPLASE) [Suspect]
     Indication: CEREBRAL ARTERY EMBOLISM
     Dosage: SEE IMAGE
     Route: 042
     Dates: start: 20061110, end: 20061110
  2. HEPARIN [Suspect]
     Indication: ATRIAL FIBRILLATION
     Dosage: 10 KIU
     Dates: start: 20061111, end: 20061114
  3. RADICUT (EDARAVONE) [Concomitant]
  4. FAMOTIDINE [Concomitant]
  5. GLYCERIN                (GLYCERIN) [Concomitant]

REACTIONS (2)
  - HAEMORRHAGIC INFARCTION [None]
  - PLATELET COUNT DECREASED [None]
